FAERS Safety Report 13249936 (Version 1)
Quarter: 2017Q1

REPORT INFORMATION
  Report Type: Spontaneous
  Country: US (occurrence: US)
  Receive Date: 20170218
  Receipt Date: 20170218
  Transmission Date: 20170428
  Serious: No
  Sender: FDA-Public Use
  Company Number: US-ALLERGAN-1664281US

PATIENT
  Sex: Female

DRUGS (2)
  1. RESTASIS [Suspect]
     Active Substance: CYCLOSPORINE
     Indication: DRY EYE
     Dosage: UNK
     Route: 047
     Dates: start: 201604
  2. RESTASIS [Suspect]
     Active Substance: CYCLOSPORINE
     Indication: DRY MOUTH

REACTIONS (3)
  - Incorrect product storage [Unknown]
  - Wrong technique in product usage process [Unknown]
  - Off label use [Unknown]
